FAERS Safety Report 6439401-9 (Version None)
Quarter: 2009Q4

REPORT INFORMATION
  Report Type: 
  Country: None (occurrence: None)
  Receive Date: 20091111
  Receipt Date: 20091111
  Transmission Date: 20100525
  Serious: No
  Sender: FDA-Public Use
  Company Number: None

PATIENT
  Sex: Female
  Weight: 20.4119 kg

DRUGS (1)
  1. VYVANSE [Suspect]
     Indication: ATTENTION DEFICIT/HYPERACTIVITY DISORDER
     Dosage: 1 CAPSULE DAILY PO
     Route: 048
     Dates: start: 20091107, end: 20091107

REACTIONS (5)
  - INSOMNIA [None]
  - MANIA [None]
  - RESTLESSNESS [None]
  - SPEECH DISORDER [None]
  - TACHYPHRENIA [None]
